FAERS Safety Report 9433239 (Version 1)
Quarter: 2013Q3

REPORT INFORMATION
  Report Type: Spontaneous
  Country: FR (occurrence: FR)
  Receive Date: 20130731
  Receipt Date: 20130731
  Transmission Date: 20140515
  Serious: Yes (Hospitalization)
  Sender: FDA-Public Use
  Company Number: FR-GLAXOSMITHKLINE-B0909582A

PATIENT
  Age: 76 Year
  Sex: Female

DRUGS (3)
  1. ARIXTRA [Suspect]
     Indication: PRODUCT USED FOR UNKNOWN INDICATION
     Dosage: 2.5MG PER DAY
     Route: 058
     Dates: start: 20130621, end: 20130703
  2. PLAVIX [Suspect]
     Indication: PRODUCT USED FOR UNKNOWN INDICATION
     Route: 048
     Dates: start: 20130628, end: 20130703
  3. LOVENOX [Concomitant]
     Dosage: 4000IU PER DAY
     Route: 058
     Dates: start: 20130613, end: 20130620

REACTIONS (7)
  - Haematemesis [Recovered/Resolved]
  - Melaena [Recovered/Resolved]
  - Anaemia [Recovered/Resolved]
  - Thrombosis [Unknown]
  - Blood pressure decreased [Unknown]
  - Gastrointestinal disorder [Unknown]
  - Gastric haemorrhage [Unknown]
